FAERS Safety Report 13484144 (Version 2)
Quarter: 2017Q2

REPORT INFORMATION
  Report Type: Report from Study
  Country: US (occurrence: US)
  Receive Date: 20170426
  Receipt Date: 20170510
  Transmission Date: 20170830
  Serious: Yes (Death, Other)
  Sender: FDA-Public Use
  Company Number: US-ROCHE-GNE282946

PATIENT

DRUGS (1)
  1. ALTEPLASE [Suspect]
     Active Substance: ALTEPLASE
     Indication: INTRAVENTRICULAR HAEMORRHAGE
     Dosage: 1 MG ALTEPLASE THROUGH AN EXTERNAL VENTRICULAR DRAIN EVERY 8 H UP TO 12 DOSES
     Route: 050

REACTIONS (5)
  - Encephalitis [Unknown]
  - CNS ventriculitis [Unknown]
  - Haemorrhage [Unknown]
  - Intraventricular haemorrhage [Unknown]
  - Death [Fatal]
